FAERS Safety Report 14134994 (Version 2)
Quarter: 2018Q1

REPORT INFORMATION
  Report Type: Spontaneous
  Country: US (occurrence: US)
  Receive Date: 20171026
  Receipt Date: 20180124
  Transmission Date: 20180508
  Serious: No
  Sender: FDA-Public Use
  Company Number: US-AMGEN-USASP2017110501

PATIENT
  Age: 79 Year
  Sex: Female

DRUGS (19)
  1. CARVEDILOL. [Concomitant]
     Active Substance: CARVEDILOL
     Dosage: 6.25 MG, UNK
  2. LEVOFLOXACIN. [Concomitant]
     Active Substance: LEVOFLOXACIN
     Dosage: 500 MG, UNK
  3. QVAR [Concomitant]
     Active Substance: BECLOMETHASONE DIPROPIONATE
     Dosage: 80 MUG, UNK
  4. AMIODARONE [Concomitant]
     Active Substance: AMIODARONE
     Dosage: 200 MG, UNK
  5. POTASSIUM CHLORIDE. [Concomitant]
     Active Substance: POTASSIUM CHLORIDE
     Dosage: 10 MEQ, UNK
  6. ATORVASTATIN [Concomitant]
     Active Substance: ATORVASTATIN
     Dosage: 40 MG, UNK
  7. SMZ-TMP DS [Concomitant]
     Active Substance: SULFAMETHOXAZOLE\TRIMETHOPRIM
     Dosage: UNK(800-160)
  8. REPATHA [Suspect]
     Active Substance: EVOLOCUMAB
     Indication: PRODUCT USED FOR UNKNOWN INDICATION
     Dosage: 140 MG, Q2WK
     Route: 058
     Dates: start: 201609
  9. SENIOR [Concomitant]
     Dosage: UNK
  10. FUROSEMIDE. [Concomitant]
     Active Substance: FUROSEMIDE
     Dosage: 40 MG, UNK
  11. LISINOPRIL. [Concomitant]
     Active Substance: LISINOPRIL
     Dosage: 5 MG, UNK
  12. PANTOPRAZOLE [Concomitant]
     Active Substance: PANTOPRAZOLE
     Dosage: 40 MG, UNK
  13. PREDNISONE. [Concomitant]
     Active Substance: PREDNISONE
     Dosage: 10 MG, UNK
  14. VENTOLIN HFA [Concomitant]
     Active Substance: ALBUTEROL SULFATE
  15. WARFARIN [Concomitant]
     Active Substance: WARFARIN
     Dosage: 1 MG, UNK
  16. CARVEDILOL. [Concomitant]
     Active Substance: CARVEDILOL
     Dosage: 25 MG, UNK
  17. JANUVIA [Concomitant]
     Active Substance: SITAGLIPTIN PHOSPHATE
     Dosage: 50 MG, UNK
  18. HYDRALAZINE [Concomitant]
     Active Substance: HYDRALAZINE HYDROCHLORIDE
     Dosage: 25 MG, UNK
  19. CEFUROXIME. [Concomitant]
     Active Substance: CEFUROXIME
     Dosage: 500 MG, UNK

REACTIONS (1)
  - Influenza like illness [Recovered/Resolved]

NARRATIVE: CASE EVENT DATE: 201707
